FAERS Safety Report 8801377 (Version 4)
Quarter: 2012Q4

REPORT INFORMATION
  Report Type: 
  Country: JP (occurrence: JP)
  Receive Date: 20120921
  Receipt Date: 20121203
  Transmission Date: 20130627
  Serious: Yes (Disabling, Other)
  Sender: FDA-Public Use
  Company Number: JP-PFIZER INC-2011303692

PATIENT
  Age: 46 Year
  Sex: Male
  Weight: 65 kg

DRUGS (3)
  1. LIPITOR [Suspect]
     Indication: HYPERCHOLESTEROLAEMIA
     Dosage: 5 mg, 1x/day
     Route: 048
     Dates: start: 20040510, end: 20110905
  2. LIPITOR [Suspect]
     Indication: HYPERLIPIDAEMIA
  3. PRONON [Suspect]
     Indication: ATRIAL FIBRILLATION
     Dosage: 150 mg, 2x/day
     Route: 048
     Dates: start: 200901, end: 20110912

REACTIONS (8)
  - Atrial fibrillation [Recovered/Resolved]
  - Malaise [Recovered/Resolved with Sequelae]
  - Muscular weakness [Not Recovered/Not Resolved]
  - Blood creatine phosphokinase increased [Recovering/Resolving]
  - Renal disorder [Recovered/Resolved]
  - Liver disorder [Recovered/Resolved]
  - Weight decreased [Not Recovered/Not Resolved]
  - Asthenia [Not Recovered/Not Resolved]
